FAERS Safety Report 5246638-3 (Version None)
Quarter: 2007Q1

REPORT INFORMATION
  Report Type: 
  Country: None (occurrence: None)
  Receive Date: 20070226
  Receipt Date: 20070214
  Transmission Date: 20070707
  Serious: Yes (Hospitalization)
  Sender: FDA-Public Use
  Company Number: MX-ROCHE-483463

PATIENT
  Age: 32 Year
  Sex: Female

DRUGS (1)
  1. ROCEPHIN [Suspect]
     Route: 042
     Dates: start: 20061115

REACTIONS (3)
  - BRADYCARDIA [None]
  - HYPOTENSION [None]
  - RASH [None]
